FAERS Safety Report 4944934-8 (Version None)
Quarter: 2006Q1

REPORT INFORMATION
  Report Type: 
  Country: None (occurrence: None)
  Receive Date: 20060315
  Receipt Date: 20051207
  Transmission Date: 20060701
  Serious: Yes (Hospitalization)
  Sender: FDA-Public Use
  Company Number: US-MERCK-0512USA01447

PATIENT
  Age: 55 Year
  Sex: Female
  Weight: 76 kg

DRUGS (11)
  1. VIOXX [Suspect]
     Indication: OSTEOARTHRITIS
     Route: 048
     Dates: start: 20030207, end: 20031029
  2. COUMADIN [Concomitant]
     Route: 065
     Dates: start: 20030207, end: 20030201
  3. OXYCONTIN [Concomitant]
     Route: 065
     Dates: start: 20030207
  4. ACETAMINOPHEN AND OXYCODONE HYDROCHLORIDE [Concomitant]
     Route: 065
     Dates: start: 20030207
  5. PREMARIN [Concomitant]
     Indication: HORMONE REPLACEMENT THERAPY
     Route: 065
     Dates: start: 19990101, end: 20030101
  6. CEFADROXIL [Concomitant]
     Route: 065
  7. ALLEGRA [Concomitant]
     Indication: HYPERSENSITIVITY
     Route: 065
  8. FOSAMAX [Concomitant]
     Route: 048
  9. ACETAMINOPHEN AND CODEINE [Concomitant]
     Route: 065
  10. VAGIFEM [Concomitant]
     Route: 065
  11. AMBIEN [Concomitant]
     Indication: SLEEP DISORDER THERAPY
     Route: 065

REACTIONS (4)
  - ARTERIOSCLEROSIS [None]
  - ARTHROSCOPY [None]
  - CEREBROVASCULAR ACCIDENT [None]
  - HYPERTENSION [None]
